FAERS Safety Report 13512141 (Version 1)
Quarter: 2017Q2

REPORT INFORMATION
  Report Type: Spontaneous
  Country: US (occurrence: US)
  Receive Date: 20170504
  Receipt Date: 20170504
  Transmission Date: 20170830
  Serious: Yes (Death, Other)
  Sender: FDA-Public Use
  Company Number: US-ENDO PHARMACEUTICALS INC-2017-002338

PATIENT
  Age: 15 Year
  Sex: Female

DRUGS (1)
  1. BUPROPION HYDROCHLORIDE XL [Suspect]
     Active Substance: BUPROPION HYDROCHLORIDE
     Indication: PRODUCT USED FOR UNKNOWN INDICATION
     Dosage: 20-30 TABS, UNKNOWN
     Route: 048

REACTIONS (6)
  - Brain herniation [Fatal]
  - Cardiac arrest [Unknown]
  - Completed suicide [Fatal]
  - Brain death [Unknown]
  - Blood lactic acid increased [Unknown]
  - Brain oedema [Unknown]
